FAERS Safety Report 9354014 (Version 1)
Quarter: 2013Q2

REPORT INFORMATION
  Report Type: Spontaneous
  Country: US (occurrence: None)
  Receive Date: 20130613
  Receipt Date: 20130613
  Transmission Date: 20140414
  Serious: Yes (Hospitalization)
  Sender: FDA-Public Use
  Company Number: B0898169A

PATIENT
  Sex: Female

DRUGS (2)
  1. MUPIROCIN [Suspect]
     Indication: SKIN LESION
  2. CO-TRIMOXAZOLE [Suspect]
     Indication: SKIN LESION
     Route: 048

REACTIONS (1)
  - Stevens-Johnson syndrome [None]
